FAERS Safety Report 6763107-X (Version None)
Quarter: 2010Q2

REPORT INFORMATION
  Report Type: 
  Country: None (occurrence: None)
  Receive Date: 20100609
  Receipt Date: 20100603
  Transmission Date: 20101027
  Serious: Yes (Death, Hospitalization)
  Sender: FDA-Public Use
  Company Number: US-ELI_LILLY_AND_COMPANY-US201005004877

PATIENT
  Sex: Male

DRUGS (3)
  1. GEMZAR [Suspect]
     Indication: PANCREATIC CARCINOMA METASTATIC
  2. HYDROCORTISONE [Concomitant]
  3. LOVENOX [Concomitant]
     Dosage: 40 MG, DAILY (1/D)
     Route: 058

REACTIONS (3)
  - LARGE INTESTINE PERFORATION [None]
  - MALIGNANT NEOPLASM PROGRESSION [None]
  - SHOCK [None]
